FAERS Safety Report 4833671-6 (Version None)
Quarter: 2005Q4

REPORT INFORMATION
  Report Type: 
  Country: None (occurrence: None)
  Receive Date: 20051116
  Receipt Date: 20051101
  Transmission Date: 20060501
  Serious: Yes (Other)
  Sender: FDA-Public Use
  Company Number: 2005149330

PATIENT
  Sex: Female
  Weight: 54.4316 kg

DRUGS (13)
  1. NEOSPORIN [Suspect]
     Indication: PROPHYLAXIS
     Dosage: UNSPECIFIED 3X DAILY, TOPICAL
     Route: 061
     Dates: start: 19950101
  2. BENADRYL [Concomitant]
  3. CITALOPRAM HYDROBROMIDE [Concomitant]
  4. ESTRADIOL [Concomitant]
  5. ERYTHROMYCIN [Concomitant]
  6. NIFEDIPINE [Concomitant]
  7. LISINOPRIL [Concomitant]
  8. LEVOTHYROXINE SODIUM [Concomitant]
  9. FOLIC ACID [Concomitant]
  10. ESOMEPRAZOLE (ESOMEPRAZOLE) [Concomitant]
  11. TRIAZOLAM [Concomitant]
  12. ALPRAZOLAM [Concomitant]
  13. NORTRIPTYLINE HCL [Concomitant]

REACTIONS (8)
  - BLISTER [None]
  - CREST SYNDROME [None]
  - ERYTHEMA [None]
  - IMPAIRED HEALING [None]
  - INCORRECT DOSE ADMINISTERED [None]
  - SCLERODERMA [None]
  - SKIN LESION [None]
  - VASCULAR BYPASS GRAFT [None]
